FAERS Safety Report 5140913-9 (Version None)
Quarter: 2006Q4

REPORT INFORMATION
  Report Type: 
  Country: None (occurrence: None)
  Receive Date: 20060914
  Receipt Date: 20060413
  Transmission Date: 20070319
  Serious: Yes (Other)
  Sender: FDA-Public Use
  Company Number: PHEH2006US04945

PATIENT
  Age: 73 Year
  Sex: Male

DRUGS (3)
  1. DIOVAN [Suspect]
     Indication: HYPERTENSION
     Dosage: SEE IMAGE
     Route: 048
     Dates: start: 20060301
  2. ATENOLOL [Suspect]
     Dosage: SEE IMAGE
  3. FUROSEMIDE [Suspect]
     Dosage: 20 MG, EVERY OTHER DAY

REACTIONS (4)
  - DIZZINESS [None]
  - FACE OEDEMA [None]
  - FATIGUE [None]
  - HEADACHE [None]
